FAERS Safety Report 21391995 (Version 1)
Quarter: 2022Q3

REPORT INFORMATION
  Report Type: Spontaneous
  Country: NL (occurrence: NL)
  Receive Date: 20220929
  Receipt Date: 20220929
  Transmission Date: 20221027
  Serious: Yes (Hospitalization)
  Sender: FDA-Public Use
  Company Number: None

PATIENT
  Sex: Female
  Weight: 61.5 kg

DRUGS (2)
  1. CONCERTA [Suspect]
     Active Substance: METHYLPHENIDATE HYDROCHLORIDE
     Indication: Affective disorder
     Dosage: 2 X PER DAG 1 STUK
     Route: 065
     Dates: start: 20220907, end: 20220909
  2. CONCERTA [Suspect]
     Active Substance: METHYLPHENIDATE HYDROCHLORIDE
     Indication: Apathy

REACTIONS (2)
  - Epilepsy [Recovered/Resolved]
  - Nystagmus [Recovered/Resolved]
